FAERS Safety Report 5976108-6 (Version None)
Quarter: 2008Q4

REPORT INFORMATION
  Report Type: 
  Country: None (occurrence: None)
  Receive Date: 20081202
  Receipt Date: 20081126
  Transmission Date: 20090506
  Serious: Yes (Hospitalization)
  Sender: FDA-Public Use
  Company Number: US-BRISTOL-MYERS SQUIBB COMPANY-14421762

PATIENT
  Age: 70 Year
  Sex: Male
  Weight: 87 kg

DRUGS (2)
  1. CISPLATIN [Suspect]
     Indication: OESOPHAGEAL CARCINOMA
     Dosage: START DATE 13OCT08
     Dates: start: 20081117, end: 20081117
  2. TAXOL [Suspect]
     Indication: OESOPHAGEAL CARCINOMA
     Dosage: START DATE 13OCT08
     Dates: start: 20081117, end: 20081117

REACTIONS (1)
  - SMALL INTESTINAL PERFORATION [None]
